FAERS Safety Report 12411161 (Version 1)
Quarter: 2016Q2

REPORT INFORMATION
  Report Type: Spontaneous
  Country: US (occurrence: None)
  Receive Date: 20160526
  Receipt Date: 20160526
  Transmission Date: 20160815
  Serious: No
  Sender: FDA-Public Use
  Company Number: None

PATIENT
  Age: 60 Year
  Sex: Male
  Weight: 81.65 kg

DRUGS (18)
  1. MECLIZINE [Concomitant]
     Active Substance: MECLIZINE HYDROCHLORIDE
  2. FLONASE [Concomitant]
     Active Substance: FLUTICASONE PROPIONATE
  3. XANAX [Concomitant]
     Active Substance: ALPRAZOLAM
  4. CRESTOR [Concomitant]
     Active Substance: ROSUVASTATIN CALCIUM
  5. RIBOFLAVIN (B2) [Concomitant]
  6. METAMUCIL [Concomitant]
     Active Substance: PLANTAGO SEED
  7. KLONOPIN [Concomitant]
     Active Substance: CLONAZEPAM
  8. GLUCOSAMINE CONDROITIN [Concomitant]
  9. LEXAPRO [Suspect]
     Active Substance: ESCITALOPRAM OXALATE
     Indication: DEPRESSION
     Dosage: ONE PILL ONCE, DAILY ORALLY
     Route: 048
     Dates: start: 201312, end: 201501
  10. ANDROGEL [Concomitant]
     Active Substance: TESTOSTERONE
  11. IBUPROFEN. [Concomitant]
     Active Substance: IBUPROFEN
  12. CONCERTA (METHYLPHENIDATE) [Concomitant]
  13. TRINTELLIX (VORTIOXETINE) [Concomitant]
  14. ZETIA [Concomitant]
     Active Substance: EZETIMIBE
  15. SYNTHROID (LEVOTHYOXINE) [Concomitant]
  16. VITAMIN D3 [Concomitant]
     Active Substance: CHOLECALCIFEROL
  17. AFO BRACE [Concomitant]
  18. SALINE NASAL RINSE [Concomitant]

REACTIONS (6)
  - Rapid eye movements sleep abnormal [None]
  - Loss of dreaming [None]
  - Sleep disorder [None]
  - Agitation [None]
  - Irritability [None]
  - Disturbance in attention [None]

NARRATIVE: CASE EVENT DATE: 2015
